FAERS Safety Report 15475471 (Version 19)
Quarter: 2020Q1

REPORT INFORMATION
  Report Type: Report from Study
  Country: US (occurrence: US)
  Receive Date: 20181008
  Receipt Date: 20200330
  Transmission Date: 20200409
  Serious: Yes (Hospitalization)
  Sender: FDA-Public Use
  Company Number: US-ACTELION-A-NJ2018-172854

PATIENT
  Age: 59 Year
  Sex: Female
  Weight: 132.43 kg

DRUGS (8)
  1. LETAIRIS [Concomitant]
     Active Substance: AMBRISENTAN
  2. AMBRISENTAN [Concomitant]
     Active Substance: AMBRISENTAN
  3. VELETRI [Suspect]
     Active Substance: EPOPROSTENOL
     Indication: PULMONARY ARTERIAL HYPERTENSION
     Dosage: 13.5 NG/KG, PER MIN
     Route: 042
  4. VELETRI [Suspect]
     Active Substance: EPOPROSTENOL
     Dosage: 13 NG/KG, PER MIN
     Route: 042
  5. REVATIO [Concomitant]
     Active Substance: SILDENAFIL CITRATE
  6. VELETRI [Suspect]
     Active Substance: EPOPROSTENOL
     Dosage: 13.5 NG/KG, PER MIN
     Route: 042
  7. COUMADIN [Concomitant]
     Active Substance: WARFARIN SODIUM
  8. VELETRI [Suspect]
     Active Substance: EPOPROSTENOL
     Dosage: 13 NG/KG, PER MIN
     Route: 042

REACTIONS (40)
  - Joint swelling [Not Recovered/Not Resolved]
  - Hospitalisation [Unknown]
  - Fluid retention [Unknown]
  - Diarrhoea [Unknown]
  - Throat irritation [Unknown]
  - Respiratory failure [Unknown]
  - Dyspnoea [Unknown]
  - Wheezing [Unknown]
  - Dyspnoea exertional [Unknown]
  - Gait inability [Unknown]
  - Dizziness [Not Recovered/Not Resolved]
  - Cough [Unknown]
  - Ear discomfort [Unknown]
  - Catheter site pruritus [Unknown]
  - Fatigue [Unknown]
  - Restless legs syndrome [Unknown]
  - Weight increased [Unknown]
  - Cardiomegaly [Unknown]
  - Pulmonary hypertension [Unknown]
  - Fluid overload [Unknown]
  - Oedema peripheral [Unknown]
  - Chest pain [Recovering/Resolving]
  - Hypercapnia [Recovering/Resolving]
  - Memory impairment [Unknown]
  - Cerebral disorder [Unknown]
  - Peripheral swelling [Unknown]
  - Malaise [Unknown]
  - Insomnia [Unknown]
  - Arteriospasm coronary [Unknown]
  - Osteoarthritis [Unknown]
  - Rhinovirus infection [Unknown]
  - Arthralgia [Unknown]
  - Arthritis [Unknown]
  - Joint injury [Unknown]
  - Nausea [Unknown]
  - Dermatitis contact [Unknown]
  - Headache [Unknown]
  - Upper respiratory tract congestion [Unknown]
  - Hypoxia [Unknown]
  - Nasopharyngitis [Unknown]

NARRATIVE: CASE EVENT DATE: 201811
